FAERS Safety Report 13351859 (Version 1)
Quarter: 2017Q1

REPORT INFORMATION
  Report Type: Spontaneous
  Country: US (occurrence: US)
  Receive Date: 20170320
  Receipt Date: 20170320
  Transmission Date: 20170429
  Serious: Yes (Other)
  Sender: FDA-Public Use
  Company Number: US-SA-2016SA156118

PATIENT
  Age: 75 Year
  Sex: Female

DRUGS (12)
  1. TRIAMCINOLONE ACETONIDE. [Suspect]
     Active Substance: TRIAMCINOLONE ACETONIDE
     Indication: NASAL CONGESTION
     Dosage: TAKEN FROM: SEVERAL MONTHS AGO?DOSE: 2 SQUIRTS/ NOSTRIL
     Route: 045
  2. TRIAMCINOLONE ACETONIDE. [Suspect]
     Active Substance: TRIAMCINOLONE ACETONIDE
     Indication: MULTIPLE ALLERGIES
     Dosage: TAKEN FROM: SEVERAL MONTHS AGO?DOSE: 2 SQUIRTS/ NOSTRIL
     Route: 045
     Dates: start: 20160819
  3. TRIAMCINOLONE ACETONIDE. [Suspect]
     Active Substance: TRIAMCINOLONE ACETONIDE
     Indication: MULTIPLE ALLERGIES
     Dosage: TAKEN FROM: DECADES AGO
     Route: 045
  4. TRIAMCINOLONE ACETONIDE. [Suspect]
     Active Substance: TRIAMCINOLONE ACETONIDE
     Indication: NASAL CONGESTION
     Dosage: TAKEN FROM: DECADES AGO
     Route: 045
  5. TRIAMCINOLONE ACETONIDE. [Suspect]
     Active Substance: TRIAMCINOLONE ACETONIDE
     Indication: UPPER-AIRWAY COUGH SYNDROME
     Dosage: TAKEN FROM: DECADES AGO
     Route: 045
  6. TRIAMCINOLONE ACETONIDE. [Suspect]
     Active Substance: TRIAMCINOLONE ACETONIDE
     Indication: NASAL CONGESTION
     Dosage: TAKEN FROM: SEVERAL MONTHS AGO?DOSE: 2 SQUIRTS/ NOSTRIL
     Route: 045
  7. TRIAMCINOLONE ACETONIDE. [Suspect]
     Active Substance: TRIAMCINOLONE ACETONIDE
     Indication: UPPER-AIRWAY COUGH SYNDROME
     Dosage: TAKEN FROM: SEVERAL MONTHS AGO?DOSE: 2 SQUIRTS/ NOSTRIL
     Route: 045
     Dates: start: 20160819
  8. TRIAMCINOLONE ACETONIDE. [Suspect]
     Active Substance: TRIAMCINOLONE ACETONIDE
     Indication: NASAL CONGESTION
     Dosage: TAKEN FROM: SEVERAL MONTHS AGO?DOSE: 2 SQUIRTS/ NOSTRIL
     Route: 045
     Dates: start: 20160819
  9. TRIAMCINOLONE ACETONIDE. [Suspect]
     Active Substance: TRIAMCINOLONE ACETONIDE
     Indication: UPPER-AIRWAY COUGH SYNDROME
     Dosage: TAKEN FROM: SEVERAL MONTHS AGO?DOSE: 2 SQUIRTS/ NOSTRIL
     Route: 045
  10. TRIAMCINOLONE ACETONIDE. [Suspect]
     Active Substance: TRIAMCINOLONE ACETONIDE
     Indication: UPPER-AIRWAY COUGH SYNDROME
     Dosage: TAKEN FROM: SEVERAL MONTHS AGO?DOSE: 2 SQUIRTS/ NOSTRIL
     Route: 045
  11. TRIAMCINOLONE ACETONIDE. [Suspect]
     Active Substance: TRIAMCINOLONE ACETONIDE
     Indication: MULTIPLE ALLERGIES
     Dosage: TAKEN FROM: SEVERAL MONTHS AGO?DOSE: 2 SQUIRTS/ NOSTRIL
     Route: 045
  12. TRIAMCINOLONE ACETONIDE. [Suspect]
     Active Substance: TRIAMCINOLONE ACETONIDE
     Indication: MULTIPLE ALLERGIES
     Dosage: TAKEN FROM: SEVERAL MONTHS AGO?DOSE: 2 SQUIRTS/ NOSTRIL
     Route: 045

REACTIONS (2)
  - Cataract [Unknown]
  - Vision blurred [Unknown]
